FAERS Safety Report 22255618 (Version 2)
Quarter: 2023Q2

REPORT INFORMATION
  Report Type: Spontaneous
  Country: US (occurrence: US)
  Receive Date: 20230426
  Receipt Date: 20230511
  Transmission Date: 20230722
  Serious: No
  Sender: FDA-Public Use
  Company Number: US-PFIZER INC-PV202300072890

PATIENT
  Age: 73 Year
  Sex: Female

DRUGS (1)
  1. XELJANZ [Suspect]
     Active Substance: TOFACITINIB CITRATE
     Dosage: 5 MG, 1X/DAY (N THE MORNING)

REACTIONS (4)
  - Cognitive disorder [Unknown]
  - Joint stiffness [Unknown]
  - Musculoskeletal stiffness [Unknown]
  - Intentional product misuse [Unknown]
